FAERS Safety Report 23084015 (Version 3)
Quarter: 2023Q4

REPORT INFORMATION
  Report Type: Spontaneous
  Country: US (occurrence: US)
  Receive Date: 20231019
  Receipt Date: 20231205
  Transmission Date: 20240110
  Serious: No
  Sender: FDA-Public Use
  Company Number: US-PFIZER INC-PV202300172739

PATIENT
  Age: 68 Year
  Sex: Female

DRUGS (1)
  1. INLYTA [Suspect]
     Active Substance: AXITINIB
     Dosage: 5 MG

REACTIONS (9)
  - Hypertension [Not Recovered/Not Resolved]
  - Headache [Unknown]
  - Nausea [Unknown]
  - Rash [Unknown]
  - Stomatitis [Unknown]
  - Decreased appetite [Unknown]
  - Dysphonia [Unknown]
  - Glossodynia [Unknown]
  - Dyspnoea [Unknown]
